FAERS Safety Report 4415886-4 (Version None)
Quarter: 2004Q3

REPORT INFORMATION
  Report Type: 
  Country: None (occurrence: None)
  Receive Date: 20040805
  Receipt Date: 20040429
  Transmission Date: 20050211
  Serious: No
  Sender: FDA-Public Use
  Company Number: US-GLAXOSMITHKLINE-A0508945A

PATIENT
  Age: 52 Year
  Sex: Female

DRUGS (4)
  1. AVANDAMET [Suspect]
     Route: 048
     Dates: start: 20040416
  2. MULTI-VITAMIN [Concomitant]
  3. CALCIUM SUPPLEMENT [Concomitant]
  4. VITAMIN B COMPLEX CAP [Concomitant]

REACTIONS (2)
  - DIARRHOEA [None]
  - INCREASED APPETITE [None]
